FAERS Safety Report 18195757 (Version 1)
Quarter: 2020Q3

REPORT INFORMATION
  Report Type: Spontaneous
  Country: DE (occurrence: DE)
  Receive Date: 20200826
  Receipt Date: 20200826
  Transmission Date: 20201103
  Serious: Yes (Other)
  Sender: FDA-Public Use
  Company Number: DE-AUROBINDO-AUR-APL-2020-044720

PATIENT
  Age: 69 Year
  Sex: Female

DRUGS (11)
  1. OXALIPLATIN. [Suspect]
     Active Substance: OXALIPLATIN
     Indication: ADENOCARCINOMA PANCREAS
     Dosage: UNK
     Route: 065
     Dates: start: 201102
  2. FOLINIC ACID [Suspect]
     Active Substance: LEUCOVORIN
     Indication: METASTASES TO LIVER
     Dosage: REDUCE CHEMOTHERAPY DOSE IN A FIRST STEP TO 75% OF STANDARD DOSE
     Route: 065
     Dates: start: 201110
  3. IRINOTECAN [Suspect]
     Active Substance: IRINOTECAN
     Dosage: REDUCTION TO 60% OF STANDARD DOSE
     Route: 065
     Dates: start: 201211
  4. FOLINIC ACID [Suspect]
     Active Substance: LEUCOVORIN
     Indication: ADENOCARCINOMA PANCREAS
     Dosage: UNK
     Route: 065
     Dates: start: 201102
  5. FOLINIC ACID [Suspect]
     Active Substance: LEUCOVORIN
     Dosage: REDUCTION TO 60% OF STANDARD DOSE
     Route: 065
     Dates: start: 201211
  6. OXALIPLATIN. [Suspect]
     Active Substance: OXALIPLATIN
     Indication: METASTASES TO LIVER
     Dosage: REDUCE CHEMOTHERAPY DOSE IN A FIRST STEP TO 75% OF STANDARD DOSE
     Route: 065
     Dates: start: 201110
  7. FLUOROURACIL. [Suspect]
     Active Substance: FLUOROURACIL
     Indication: ADENOCARCINOMA PANCREAS
     Dosage: UNK
     Route: 065
     Dates: start: 201102
  8. FLUOROURACIL. [Suspect]
     Active Substance: FLUOROURACIL
     Indication: METASTASES TO LIVER
     Dosage: REDUCTION OF CHEMOTHERAPY DOSE IN A FIRST STEP TO 75% OF STANDARD DOSE
     Route: 065
     Dates: start: 201110
  9. IRINOTECAN [Suspect]
     Active Substance: IRINOTECAN
     Indication: ADENOCARCINOMA PANCREAS
     Dosage: UNK
     Route: 065
     Dates: start: 201102
  10. IRINOTECAN [Suspect]
     Active Substance: IRINOTECAN
     Indication: METASTASES TO LIVER
     Dosage: REDUCE CHEMOTHERAPY DOSE IN A FIRST STEP TO 75% OF STANDARD DOSE
     Route: 065
     Dates: start: 201110
  11. OXALIPLATIN. [Suspect]
     Active Substance: OXALIPLATIN
     Dosage: REDUCTION TO 60% OF STANDARD DOSE
     Route: 065
     Dates: start: 201211

REACTIONS (6)
  - Thrombocytopenia [Unknown]
  - Paraesthesia [Recovered/Resolved]
  - Mucosal inflammation [Unknown]
  - Neutropenia [Unknown]
  - Leukopenia [Unknown]
  - Polyneuropathy [Unknown]
